FAERS Safety Report 25493452 (Version 1)
Quarter: 2025Q2

REPORT INFORMATION
  Report Type: Spontaneous
  Country: US (occurrence: US)
  Receive Date: 20250630
  Receipt Date: 20250630
  Transmission Date: 20250716
  Serious: Yes (Death, Hospitalization)
  Sender: MYLAN
  Company Number: US-MYLANLABS-2025M1054207

PATIENT
  Age: 15 Year
  Sex: Male

DRUGS (44)
  1. VANCOMYCIN [Suspect]
     Active Substance: VANCOMYCIN
     Indication: Aspergillus infection
  2. VANCOMYCIN [Suspect]
     Active Substance: VANCOMYCIN
     Route: 065
  3. VANCOMYCIN [Suspect]
     Active Substance: VANCOMYCIN
     Route: 065
  4. VANCOMYCIN [Suspect]
     Active Substance: VANCOMYCIN
  5. PREDNISONE [Suspect]
     Active Substance: PREDNISONE
     Indication: Neuromyelitis optica spectrum disorder
     Dosage: 60 MILLIGRAM, QD; A SLOW ORAL PREDNISONE TAPER BEGINNING AT 60MG DAILY AND DECREASING BY 5MG WEEKLY,
     Dates: start: 20220809
  6. PREDNISONE [Suspect]
     Active Substance: PREDNISONE
     Dosage: 60 MILLIGRAM, QD; A SLOW ORAL PREDNISONE TAPER BEGINNING AT 60MG DAILY AND DECREASING BY 5MG WEEKLY,
     Dates: start: 20220809
  7. PREDNISONE [Suspect]
     Active Substance: PREDNISONE
     Dosage: 60 MILLIGRAM, QD; A SLOW ORAL PREDNISONE TAPER BEGINNING AT 60MG DAILY AND DECREASING BY 5MG WEEKLY,
     Route: 048
     Dates: start: 20220809
  8. PREDNISONE [Suspect]
     Active Substance: PREDNISONE
     Dosage: 60 MILLIGRAM, QD; A SLOW ORAL PREDNISONE TAPER BEGINNING AT 60MG DAILY AND DECREASING BY 5MG WEEKLY,
     Route: 048
     Dates: start: 20220809
  9. PREDNISONE [Suspect]
     Active Substance: PREDNISONE
     Dosage: 5 MILLIGRAM, QW; A SLOW ORAL PREDNISONE TAPER BEGINNING AT 60MG DAILY AND DECREASING BY 5MG WEEKLY,
  10. PREDNISONE [Suspect]
     Active Substance: PREDNISONE
     Dosage: 5 MILLIGRAM, QW; A SLOW ORAL PREDNISONE TAPER BEGINNING AT 60MG DAILY AND DECREASING BY 5MG WEEKLY,
  11. PREDNISONE [Suspect]
     Active Substance: PREDNISONE
     Dosage: 5 MILLIGRAM, QW; A SLOW ORAL PREDNISONE TAPER BEGINNING AT 60MG DAILY AND DECREASING BY 5MG WEEKLY,
     Route: 048
  12. PREDNISONE [Suspect]
     Active Substance: PREDNISONE
     Dosage: 5 MILLIGRAM, QW; A SLOW ORAL PREDNISONE TAPER BEGINNING AT 60MG DAILY AND DECREASING BY 5MG WEEKLY,
     Route: 048
  13. METHYLPREDNISOLONE [Suspect]
     Active Substance: METHYLPREDNISOLONE
     Indication: Neuromyelitis optica spectrum disorder
     Dosage: 500 MILLIGRAM, BID
     Dates: start: 20220714
  14. METHYLPREDNISOLONE [Suspect]
     Active Substance: METHYLPREDNISOLONE
     Dosage: 500 MILLIGRAM, BID
     Route: 042
     Dates: start: 20220714
  15. METHYLPREDNISOLONE [Suspect]
     Active Substance: METHYLPREDNISOLONE
     Dosage: 500 MILLIGRAM, BID
     Route: 042
     Dates: start: 20220714
  16. METHYLPREDNISOLONE [Suspect]
     Active Substance: METHYLPREDNISOLONE
     Dosage: 500 MILLIGRAM, BID
     Dates: start: 20220714
  17. TOCILIZUMAB [Suspect]
     Active Substance: TOCILIZUMAB
     Indication: Neuromyelitis optica spectrum disorder
  18. TOCILIZUMAB [Suspect]
     Active Substance: TOCILIZUMAB
     Route: 042
  19. TOCILIZUMAB [Suspect]
     Active Substance: TOCILIZUMAB
     Route: 042
  20. TOCILIZUMAB [Suspect]
     Active Substance: TOCILIZUMAB
  21. IMMUNE GLOBULIN NOS [Suspect]
     Active Substance: IMMUNE GLOBULIN NOS
     Indication: Neuromyelitis optica spectrum disorder
  22. IMMUNE GLOBULIN NOS [Suspect]
     Active Substance: IMMUNE GLOBULIN NOS
     Route: 042
  23. IMMUNE GLOBULIN NOS [Suspect]
     Active Substance: IMMUNE GLOBULIN NOS
     Route: 042
  24. IMMUNE GLOBULIN NOS [Suspect]
     Active Substance: IMMUNE GLOBULIN NOS
  25. AMPHOTERICIN B [Suspect]
     Active Substance: AMPHOTERICIN B
     Indication: Aspergillus infection
  26. AMPHOTERICIN B [Suspect]
     Active Substance: AMPHOTERICIN B
     Route: 065
  27. AMPHOTERICIN B [Suspect]
     Active Substance: AMPHOTERICIN B
     Route: 065
  28. AMPHOTERICIN B [Suspect]
     Active Substance: AMPHOTERICIN B
  29. MICAFUNGIN [Suspect]
     Active Substance: MICAFUNGIN SODIUM
     Indication: Aspergillus infection
  30. MICAFUNGIN [Suspect]
     Active Substance: MICAFUNGIN SODIUM
     Route: 065
  31. MICAFUNGIN [Suspect]
     Active Substance: MICAFUNGIN SODIUM
     Route: 065
  32. MICAFUNGIN [Suspect]
     Active Substance: MICAFUNGIN SODIUM
  33. CEFEPIME [Suspect]
     Active Substance: CEFEPIME HYDROCHLORIDE
     Indication: Aspergillus infection
  34. CEFEPIME [Suspect]
     Active Substance: CEFEPIME HYDROCHLORIDE
     Route: 065
  35. CEFEPIME [Suspect]
     Active Substance: CEFEPIME HYDROCHLORIDE
     Route: 065
  36. CEFEPIME [Suspect]
     Active Substance: CEFEPIME HYDROCHLORIDE
  37. METRONIDAZOLE [Suspect]
     Active Substance: METRONIDAZOLE
     Indication: Aspergillus infection
  38. METRONIDAZOLE [Suspect]
     Active Substance: METRONIDAZOLE
     Route: 065
  39. METRONIDAZOLE [Suspect]
     Active Substance: METRONIDAZOLE
     Route: 065
  40. METRONIDAZOLE [Suspect]
     Active Substance: METRONIDAZOLE
  41. INSULIN NOS [Concomitant]
     Active Substance: INSULIN NOS
     Indication: Diabetic ketoacidosis
  42. INSULIN NOS [Concomitant]
     Active Substance: INSULIN NOS
     Route: 042
  43. INSULIN NOS [Concomitant]
     Active Substance: INSULIN NOS
     Route: 042
  44. INSULIN NOS [Concomitant]
     Active Substance: INSULIN NOS

REACTIONS (5)
  - Aspergillus infection [Fatal]
  - Duodenal perforation [Fatal]
  - Drug ineffective [Fatal]
  - Organ failure [Fatal]
  - Unresponsive to stimuli [Fatal]
